FAERS Safety Report 18732395 (Version 1)
Quarter: 2021Q1

REPORT INFORMATION
  Report Type: Spontaneous
  Country: BR (occurrence: BR)
  Receive Date: 20210112
  Receipt Date: 20210112
  Transmission Date: 20210419
  Serious: Yes (Other)
  Sender: FDA-Public Use
  Company Number: BR-LUNDBECK-DKLU3024485

PATIENT
  Age: 55 Year
  Sex: Male
  Weight: 79 kg

DRUGS (8)
  1. URBANIL [Suspect]
     Active Substance: CLOBAZAM
     Indication: EPILEPSY
     Route: 048
  2. TECTA [Concomitant]
     Active Substance: PANTOPRAZOLE MAGNESIUM
     Indication: EPILEPSY
     Route: 065
  3. KEPPRA [Concomitant]
     Active Substance: LEVETIRACETAM
     Indication: PRODUCT USED FOR UNKNOWN INDICATION
     Route: 065
  4. LAMOTRIGINE. [Concomitant]
     Active Substance: LAMOTRIGINE
     Indication: EPILEPSY
     Route: 065
  5. TEGRETOL XR [Concomitant]
     Active Substance: CARBAMAZEPINE
     Indication: PRODUCT USED FOR UNKNOWN INDICATION
     Route: 065
  6. URBANIL [Suspect]
     Active Substance: CLOBAZAM
     Route: 048
  7. TEGRETOL [Concomitant]
     Active Substance: CARBAMAZEPINE
     Indication: EPILEPSY
     Route: 065
  8. URBANIL [Suspect]
     Active Substance: CLOBAZAM
     Dosage: TAKES URBANIL OF 20 AND HALF OF 10
     Route: 065

REACTIONS (5)
  - Syncope [Unknown]
  - Epilepsy [Unknown]
  - Walking disability [Unknown]
  - Brain operation [Unknown]
  - Hemiparesis [Unknown]
